FAERS Safety Report 13945214 (Version 1)
Quarter: 2017Q3

REPORT INFORMATION
  Report Type: Report from Study
  Country: IE (occurrence: IE)
  Receive Date: 20170907
  Receipt Date: 20170907
  Transmission Date: 20171128
  Serious: Yes (Death, Other)
  Sender: FDA-Public Use
  Company Number: IE-AMGEN-IRLSL2017135390

PATIENT
  Sex: Female

DRUGS (8)
  1. NEULASTA [Suspect]
     Active Substance: PEGFILGRASTIM
     Indication: PRODUCT USED FOR UNKNOWN INDICATION
     Dosage: 6 MG, Q3WK (POST CHEMOTHERAPY)
     Route: 058
  2. ASPIRIN. [Concomitant]
     Active Substance: ASPIRIN
     Dosage: 75 MG, QD
     Route: 050
  3. MEFAC [Concomitant]
     Dosage: 250 MG, AS NECESSARY (PRN)
     Route: 050
  4. IMODIUM [Concomitant]
     Active Substance: LOPERAMIDE HYDROCHLORIDE
     Dosage: 2 MG, AS NECESSARY (PRN)
     Route: 050
  5. NORTEM [Concomitant]
     Dosage: 10 MG, QHS (NIGHT)
     Route: 050
  6. CALCI CHEW [Concomitant]
     Dosage: UNK, BID (1 N/A)
     Route: 050
  7. VALOID [Concomitant]
     Active Substance: CYCLIZINE HYDROCHLORIDE
     Dosage: 50 MG, AS NECESSARY (PRN)
     Route: 050
  8. NOVOMIX [Concomitant]
     Active Substance: INSULIN ASPART
     Dosage: 15 UNIT, BID
     Route: 050

REACTIONS (1)
  - Death [Fatal]
